FAERS Safety Report 6151219-3 (Version None)
Quarter: 2009Q2

REPORT INFORMATION
  Report Type: 
  Country: None (occurrence: None)
  Receive Date: 20090410
  Receipt Date: 20090406
  Transmission Date: 20091009
  Serious: Yes (Death)
  Sender: FDA-Public Use
  Company Number: BR-BRISTOL-MYERS SQUIBB COMPANY-14575328

PATIENT
  Age: 33 Year
  Sex: Female

DRUGS (5)
  1. STAVUDINE [Suspect]
     Indication: ANTIRETROVIRAL THERAPY
     Dates: start: 20000101
  2. DIDANOSINE [Suspect]
     Indication: ANTIRETROVIRAL THERAPY
     Dates: start: 20000601
  3. LAMIVUDINE [Suspect]
     Indication: ANTIFUNGAL PROPHYLAXIS
     Dates: start: 20000601
  4. LAMIVUDINE [Suspect]
     Indication: ANTIRETROVIRAL THERAPY
     Dates: start: 20000601
  5. NELFINAVIR [Suspect]
     Indication: ANTIRETROVIRAL THERAPY
     Dates: start: 20000601

REACTIONS (3)
  - ASPERGILLOSIS [None]
  - CANDIDIASIS [None]
  - SINUSITIS [None]
